FAERS Safety Report 9563806 (Version 1)
Quarter: 2013Q3

REPORT INFORMATION
  Report Type: Spontaneous
  Country: US (occurrence: None)
  Receive Date: 20130926
  Receipt Date: 20130926
  Transmission Date: 20140515
  Serious: Yes (Death, Other)
  Sender: FDA-Public Use
  Company Number: ADR-2013-01704

PATIENT
  Sex: Male

DRUGS (1)
  1. LIORESAL [Suspect]

REACTIONS (1)
  - Death [None]
